FAERS Safety Report 8227793-X (Version None)
Quarter: 2012Q1

REPORT INFORMATION
  Report Type: 
  Country: None (occurrence: None)
  Receive Date: 20120322
  Receipt Date: 20120312
  Transmission Date: 20120608
  Serious: Yes (Hospitalization)
  Sender: FDA-Public Use
  Company Number: JP-SANOFI-AVENTIS-2012SA019334

PATIENT
  Age: 78 Year
  Sex: Female
  Weight: 51.8 kg

DRUGS (16)
  1. MUCOSOLVAN [Concomitant]
  2. BUDESONIDE W/FORMOTEROL FUMARATE [Suspect]
     Route: 055
  3. ALFAROL [Concomitant]
  4. RABEPRAZOLE SODIUM [Concomitant]
  5. ALL OTHER THERAPEUTIC PRODUCTS [Suspect]
     Route: 048
     Dates: start: 20111101, end: 20111114
  6. ERYTHROCIN LACTOBIONATE [Concomitant]
  7. PREDNISOLONE [Concomitant]
  8. CYANOCOBALAMIN [Concomitant]
  9. MONTELUKAST SODIUM [Concomitant]
  10. MAGNESIUM SULFATE [Concomitant]
  11. AMLODIPINE [Concomitant]
  12. PRAVASTATIN [Concomitant]
  13. ZOLPIDEM [Suspect]
     Route: 048
  14. ALL OTHER THERAPEUTIC PRODUCTS [Suspect]
     Route: 048
     Dates: start: 20111115, end: 20120221
  15. OLMESARTAN MEDOXOMIL [Concomitant]
  16. PRANOPROFEN [Concomitant]

REACTIONS (2)
  - AORTIC DISSECTION [None]
  - ARRHYTHMIA [None]
